FAERS Safety Report 18031032 (Version 3)
Quarter: 2020Q3

REPORT INFORMATION
  Report Type: Spontaneous
  Country: JP (occurrence: JP)
  Receive Date: 20200715
  Receipt Date: 20200812
  Transmission Date: 20201103
  Serious: Yes (Hospitalization)
  Sender: FDA-Public Use
  Company Number: JP-ROCHE-2641515

PATIENT
  Sex: Female

DRUGS (13)
  1. ABRAXANE [Concomitant]
     Active Substance: PACLITAXEL
     Indication: TRIPLE NEGATIVE BREAST CANCER
     Dosage: DOSAGE IS UNCERTAIN.
     Route: 041
     Dates: start: 20200115, end: 20200528
  2. MEDICON TABLETS (JAPAN) [Concomitant]
     Dosage: DOSE INTERVAL UNCERTAINTY
     Route: 048
     Dates: start: 20200528
  3. LOXOPROFEN [Concomitant]
     Active Substance: LOXOPROFEN
     Route: 048
     Dates: start: 20200117, end: 20200528
  4. TECENTRIQ [Suspect]
     Active Substance: ATEZOLIZUMAB
     Indication: TRIPLE NEGATIVE BREAST CANCER
     Route: 041
     Dates: start: 20200115, end: 20200528
  5. LANSOPRAZOLE OD [Concomitant]
     Active Substance: LANSOPRAZOLE
     Dosage: DOSE INTERVAL UNCERTAINTY
     Route: 048
     Dates: start: 20200116, end: 20200326
  6. TRAMAL OD [Concomitant]
     Active Substance: TRAMADOL
     Dosage: DOSE INTERVAL UNCERTAINTY
     Route: 048
     Dates: start: 20200116, end: 20200518
  7. VOLTAREN [Concomitant]
     Active Substance: DICLOFENAC SODIUM
     Route: 054
     Dates: start: 20200521, end: 20200528
  8. NARURAPID [Concomitant]
     Active Substance: HYDROMORPHONE HYDROCHLORIDE
     Route: 048
     Dates: start: 20200423, end: 20200528
  9. NAUZELIN [Concomitant]
     Active Substance: DOMPERIDONE
     Route: 054
     Dates: start: 20200424, end: 20200528
  10. REBAMIPIDE [Concomitant]
     Active Substance: REBAMIPIDE
     Route: 048
     Dates: start: 20200117, end: 20200528
  11. NOVAMIN (JAPAN) [Concomitant]
     Route: 048
     Dates: start: 20200119, end: 20200528
  12. AUGMENTINE [Concomitant]
     Active Substance: AMOXICILLIN\CLAVULANATE POTASSIUM
     Dosage: DOSE INTERVAL UNCERTAINTY
     Route: 048
     Dates: start: 20200417, end: 20200420
  13. METOCLOPRAMIDE. [Concomitant]
     Active Substance: METOCLOPRAMIDE
     Route: 048
     Dates: start: 20200424, end: 20200528

REACTIONS (1)
  - Interstitial lung disease [Recovering/Resolving]

NARRATIVE: CASE EVENT DATE: 20200629
